FAERS Safety Report 5331713-5 (Version None)
Quarter: 2007Q2

REPORT INFORMATION
  Report Type: 
  Country: None (occurrence: None)
  Receive Date: 20070516
  Receipt Date: 20070509
  Transmission Date: 20071010
  Serious: Yes (Hospitalization)
  Sender: FDA-Public Use
  Company Number: JPI-P-001269

PATIENT
  Age: 38 Year
  Sex: Male

DRUGS (6)
  1. XYREM [Suspect]
     Indication: CATAPLEXY
     Dosage: 9.5 GM (4.75 GM, 2 IN 1 D), ORAL
     Route: 048
     Dates: start: 20050101, end: 20070430
  2. NEURONTIN [Concomitant]
  3. EFFEXOR [Concomitant]
  4. MIRAPEX [Concomitant]
  5. AMBIEN [Concomitant]
  6. ADDERALL (OBETROL/01345401/) [Concomitant]

REACTIONS (2)
  - DRUG TOLERANCE [None]
  - LOWER LIMB FRACTURE [None]
